FAERS Safety Report 12110807 (Version 2)
Quarter: 2017Q3

REPORT INFORMATION
  Report Type: Spontaneous
  Country: TR (occurrence: TR)
  Receive Date: 20160224
  Receipt Date: 20170807
  Transmission Date: 20171127
  Serious: Yes (Hospitalization, Other)
  Sender: FDA-Public Use
  Company Number: TR-PFIZER INC-2016032483

PATIENT
  Age: 55 Year
  Sex: Female

DRUGS (4)
  1. METHYLPREDNISOLONE. [Suspect]
     Active Substance: METHYLPREDNISOLONE
     Indication: IMMUNOSUPPRESSION
     Dosage: UNK
  2. TACROLIMUS. [Suspect]
     Active Substance: TACROLIMUS
     Dosage: 3 MG, UNK
  3. TACROLIMUS. [Suspect]
     Active Substance: TACROLIMUS
     Dosage: 2 MG, UNK
  4. TACROLIMUS. [Suspect]
     Active Substance: TACROLIMUS
     Indication: IMMUNOSUPPRESSION
     Dosage: 4 MG, UNK

REACTIONS (1)
  - Posterior reversible encephalopathy syndrome [Recovered/Resolved]
